FAERS Safety Report 15813232 (Version 1)
Quarter: 2019Q1

REPORT INFORMATION
  Report Type: Spontaneous
  Country: US (occurrence: US)
  Receive Date: 20190111
  Receipt Date: 20190111
  Transmission Date: 20190417
  Serious: Yes (Life-Threatening, Other)
  Sender: FDA-Public Use
  Company Number: US-PFIZER INC-2018409977

PATIENT
  Age: 30 Year
  Sex: Male

DRUGS (37)
  1. PRECEDEX [Suspect]
     Active Substance: DEXMEDETOMIDINE HYDROCHLORIDE
     Dosage: UNK
     Route: 042
  2. DILAUDID [Suspect]
     Active Substance: HYDROMORPHONE HYDROCHLORIDE
     Indication: FLUSHING
  3. GABAPENTIN. [Concomitant]
     Active Substance: GABAPENTIN
     Indication: FLUSHING
  4. VALIUM [Suspect]
     Active Substance: DIAZEPAM
     Indication: FLUSHING
  5. VERSED [Suspect]
     Active Substance: MIDAZOLAM HYDROCHLORIDE
     Indication: PRURITUS GENERALISED
     Dosage: UNK
     Route: 042
  6. GABAPENTIN. [Concomitant]
     Active Substance: GABAPENTIN
     Indication: MUSCLE SPASTICITY
  7. DIPHENHYDRAMINE. [Concomitant]
     Active Substance: DIPHENHYDRAMINE
     Indication: PRURITUS
  8. DIPHENHYDRAMINE. [Concomitant]
     Active Substance: DIPHENHYDRAMINE
     Indication: PRURITUS
  9. VERSED [Suspect]
     Active Substance: MIDAZOLAM HYDROCHLORIDE
     Indication: MUSCLE SPASTICITY
  10. BACLOFEN. [Concomitant]
     Active Substance: BACLOFEN
     Indication: FLUSHING
     Dosage: 30 MG, 4X/DAY
     Route: 048
  11. MARIJUANA [Concomitant]
     Active Substance: CANNABIS SATIVA SUBSP. INDICA TOP
     Indication: MUSCLE SPASTICITY
  12. DIPHENHYDRAMINE. [Concomitant]
     Active Substance: DIPHENHYDRAMINE
     Indication: MUSCLE SPASTICITY
     Dosage: 50 MG, UNK
     Route: 042
  13. MORPHINE [Concomitant]
     Active Substance: MORPHINE
     Indication: MUSCLE SPASTICITY
     Dosage: UNK
  14. MORPHINE [Concomitant]
     Active Substance: MORPHINE
     Indication: AGITATION
  15. AMOXICILLIN. [Concomitant]
     Active Substance: AMOXICILLIN
     Indication: URINARY TRACT INFECTION
     Dosage: UNK
  16. NORMAL SALINE [Concomitant]
     Active Substance: SODIUM CHLORIDE
     Dosage: UNK
  17. CEFTRIAXONE. [Concomitant]
     Active Substance: CEFTRIAXONE
     Indication: URINARY TRACT INFECTION
     Dosage: UNK
  18. VANCOMYCIN [Concomitant]
     Active Substance: VANCOMYCIN
     Indication: URINARY TRACT INFECTION
     Dosage: UNK
  19. DILAUDID [Suspect]
     Active Substance: HYDROMORPHONE HYDROCHLORIDE
     Indication: PRURITUS GENERALISED
     Dosage: UNK
  20. DILAUDID [Suspect]
     Active Substance: HYDROMORPHONE HYDROCHLORIDE
     Indication: MUSCLE SPASTICITY
  21. GABAPENTIN. [Concomitant]
     Active Substance: GABAPENTIN
     Indication: PRURITUS GENERALISED
     Dosage: 300 MG, 3X/DAY
  22. OXYCODONE [Concomitant]
     Active Substance: OXYCODONE
     Indication: FLUSHING
  23. MARIJUANA [Concomitant]
     Active Substance: CANNABIS SATIVA SUBSP. INDICA TOP
     Indication: PRURITUS GENERALISED
     Dosage: UNK UNK, AS NEEDED
  24. MARIJUANA [Concomitant]
     Active Substance: CANNABIS SATIVA SUBSP. INDICA TOP
     Indication: FLUSHING
  25. VALIUM [Suspect]
     Active Substance: DIAZEPAM
     Indication: PRURITUS GENERALISED
     Dosage: UNK, (ADMINISTERED EVERY 30-60 MIN)
     Route: 042
  26. CYPROHEPTADINE. [Suspect]
     Active Substance: CYPROHEPTADINE
     Indication: MUSCLE SPASTICITY
  27. DIPHENHYDRAMINE. [Concomitant]
     Active Substance: DIPHENHYDRAMINE
     Indication: AGITATION
  28. MORPHINE [Concomitant]
     Active Substance: MORPHINE
     Indication: PRURITUS
  29. VALIUM [Suspect]
     Active Substance: DIAZEPAM
     Indication: MUSCLE SPASTICITY
  30. CYPROHEPTADINE. [Suspect]
     Active Substance: CYPROHEPTADINE
     Indication: PRURITUS GENERALISED
     Dosage: UNK
  31. CYPROHEPTADINE. [Suspect]
     Active Substance: CYPROHEPTADINE
     Indication: FLUSHING
  32. VERSED [Suspect]
     Active Substance: MIDAZOLAM HYDROCHLORIDE
     Indication: FLUSHING
  33. BACLOFEN. [Concomitant]
     Active Substance: BACLOFEN
     Indication: PRURITUS GENERALISED
     Dosage: 620 UG, DAILY (CONTINUOUS INFUSION)
     Route: 042
  34. BACLOFEN. [Concomitant]
     Active Substance: BACLOFEN
     Indication: MUSCLE SPASTICITY
  35. OXYCODONE [Concomitant]
     Active Substance: OXYCODONE
     Indication: PRURITUS GENERALISED
     Dosage: UNK, AS NEEDED
  36. OXYCODONE [Concomitant]
     Active Substance: OXYCODONE
     Indication: MUSCLE SPASTICITY
  37. ATIVAN [Concomitant]
     Active Substance: LORAZEPAM
     Indication: MUSCLE SPASTICITY
     Dosage: 2 MG, UNK
     Route: 042

REACTIONS (2)
  - Hypercapnia [Unknown]
  - Somnolence [Unknown]
